FAERS Safety Report 20910539 (Version 2)
Quarter: 2022Q2

REPORT INFORMATION
  Report Type: Spontaneous
  Country: US (occurrence: US)
  Receive Date: 20220603
  Receipt Date: 20220603
  Transmission Date: 20220721
  Serious: Yes (Other)
  Sender: FDA-Public Use
  Company Number: US-PFIZER INC-202200755728

PATIENT
  Age: 15 Year
  Sex: Male

DRUGS (2)
  1. PENICILLIN G PROCAINE [Suspect]
     Active Substance: PENICILLIN G PROCAINE
     Indication: Purulent discharge
     Dosage: 480000 IU (DIVIDED DOSE.)
     Route: 030
  2. PROBENECID [Concomitant]
     Active Substance: PROBENECID
     Dosage: 1 G

REACTIONS (1)
  - Hoigne^s syndrome [Recovered/Resolved]
